FAERS Safety Report 9165850 (Version 4)
Quarter: 2013Q2

REPORT INFORMATION
  Report Type: Spontaneous
  Country: DE (occurrence: DE)
  Receive Date: 20130315
  Receipt Date: 20130423
  Transmission Date: 20140414
  Serious: Yes (Hospitalization)
  Sender: FDA-Public Use
  Company Number: DE-ROCHE-1201933

PATIENT
  Age: 71 Year
  Sex: Female

DRUGS (20)
  1. PEGFILGRASTIM [Suspect]
     Indication: B-CELL LYMPHOMA
     Route: 058
     Dates: start: 20121223
  2. RITUXIMAB [Suspect]
     Indication: B-CELL LYMPHOMA
     Dosage: DATE FOR LAST DOSE OF RITUXIMAB: 13/FEB/2013
     Route: 042
     Dates: start: 20121214
  3. CYCLOPHOSPHAMIDE [Suspect]
     Indication: B-CELL LYMPHOMA
     Dosage: DATE FOR LAST DOSE PRIOR SAE: 14/FEB/2013; 19/FEB/2013
     Route: 042
     Dates: start: 20121219
  4. DOXORUBICIN [Suspect]
     Indication: B-CELL LYMPHOMA
     Dosage: DATE FOR LAST DOSE PRIOR SAE: 14/FEB/2013; 19/FEB/2013
     Route: 042
     Dates: start: 20121219
  5. VINCRISTINE [Suspect]
     Indication: B-CELL LYMPHOMA
     Dosage: 1X FOR 17 DAYS; DATE FOR LAST DOSE PRIOR SAE: 14/FEB/2013; 19/FEB/2013
     Route: 042
     Dates: start: 20121219, end: 20130104
  6. PREDNISOLONE [Suspect]
     Indication: B-CELL LYMPHOMA
     Route: 048
     Dates: start: 20121210
  7. SULFAMETHOXAZOLE/TRIMETHOPRIM [Concomitant]
     Route: 065
     Dates: start: 20121227
  8. AMLODIPINE [Concomitant]
     Route: 065
     Dates: start: 20130131
  9. KALIUMCHLORIDEDRANK [Concomitant]
     Route: 065
     Dates: start: 20121214
  10. CIPROFLOXACIN [Concomitant]
     Route: 065
     Dates: start: 20121228
  11. ACICLOVIR [Concomitant]
     Route: 065
     Dates: start: 20121228
  12. ALLOPURINOL [Concomitant]
     Route: 065
     Dates: start: 20121211
  13. RAMIPRIL [Concomitant]
     Route: 065
     Dates: start: 20121207
  14. BISOPROLOL HEMIFUMARATE [Concomitant]
  15. AMPHOTERICIN B [Concomitant]
     Route: 065
     Dates: start: 201212
  16. ZOPICLONE [Concomitant]
     Route: 065
     Dates: start: 20121216
  17. PREGABALIN [Concomitant]
     Route: 065
     Dates: start: 20130131
  18. HYDROCHLOROTHIAZIDE [Concomitant]
     Route: 065
     Dates: start: 20130131
  19. METOCLOPRAMIDE HYDROCHLORIDE [Concomitant]
     Route: 065
     Dates: start: 20121225
  20. HUMINSULIN BASAL [Concomitant]
     Route: 065
     Dates: start: 20121206

REACTIONS (1)
  - Circulatory collapse [Unknown]
